FAERS Safety Report 13614532 (Version 3)
Quarter: 2019Q1

REPORT INFORMATION
  Report Type: Report from Study
  Country: GB (occurrence: GB)
  Receive Date: 20170606
  Receipt Date: 20190303
  Transmission Date: 20190417
  Serious: Yes (Hospitalization, Other)
  Sender: FDA-Public Use
  Company Number: GB-AMGEN-GBRSL2017083037

PATIENT
  Age: 86 Year
  Sex: Female

DRUGS (1)
  1. ARANESP [Suspect]
     Active Substance: DARBEPOETIN ALFA
     Indication: PRODUCT USED FOR UNKNOWN INDICATION
     Dosage: 30 MUG, UNK
     Route: 065

REACTIONS (4)
  - Hip fracture [Unknown]
  - Hypertension [Unknown]
  - Fall [Unknown]
  - Osteonecrosis [Unknown]

NARRATIVE: CASE EVENT DATE: 20170520
